FAERS Safety Report 17685118 (Version 1)
Quarter: 2020Q2

REPORT INFORMATION
  Report Type: Spontaneous
  Country: CA (occurrence: CA)
  Receive Date: 20200420
  Receipt Date: 20200420
  Transmission Date: 20200714
  Serious: Yes (Disabling)
  Sender: FDA-Public Use
  Company Number: CA-009507513-2004CAN005262

PATIENT
  Sex: Female

DRUGS (1)
  1. MAXALT [Suspect]
     Active Substance: RIZATRIPTAN BENZOATE
     Indication: MIGRAINE
     Dosage: DOSAGE FORM TABLET (ORALLY DISINTEGRATING)
     Route: 048

REACTIONS (3)
  - Migraine [Unknown]
  - Dizziness [Unknown]
  - Product blister packaging issue [Unknown]
